FAERS Safety Report 9605356 (Version 1)
Quarter: 2013Q4

REPORT INFORMATION
  Report Type: Report from Study
  Country: BR (occurrence: BR)
  Receive Date: 20131008
  Receipt Date: 20131008
  Transmission Date: 20140711
  Serious: Yes (Other)
  Sender: FDA-Public Use
  Company Number: PHHY2013BR112660

PATIENT
  Sex: Female

DRUGS (1)
  1. DIOVAN TRIPLE [Suspect]
     Indication: HYPERTENSION
     Dosage: 1 DF, (160/5/12.5 MG) DAILY, IN THE MORNING

REACTIONS (1)
  - Dementia Alzheimer^s type [Not Recovered/Not Resolved]
